FAERS Safety Report 4884934-X (Version None)
Quarter: 2006Q1

REPORT INFORMATION
  Report Type: 
  Country: None (occurrence: None)
  Receive Date: 20060119
  Receipt Date: 20060116
  Transmission Date: 20060701
  Serious: Yes (Hospitalization)
  Sender: FDA-Public Use
  Company Number: 2006CG00116

PATIENT
  Age: 63 Year
  Sex: Male

DRUGS (3)
  1. NEXIUM [Suspect]
     Route: 048
     Dates: start: 20051116, end: 20051227
  2. SINTROM [Concomitant]
     Dosage: 2 MG ALTERNATING WITH 3 MG QOD
     Route: 048
     Dates: start: 20050115, end: 20051227
  3. SINTROM [Concomitant]
     Route: 048
     Dates: start: 20051228

REACTIONS (3)
  - CONFUSIONAL STATE [None]
  - HYPERAMMONAEMIA [None]
  - INTERNATIONAL NORMALISED RATIO INCREASED [None]
